FAERS Safety Report 9305950 (Version 2)
Quarter: 2013Q2

REPORT INFORMATION
  Report Type: Spontaneous
  Country: DE (occurrence: None)
  Receive Date: 20130520
  Receipt Date: 20130604
  Transmission Date: 20140414
  Serious: Yes (Other)
  Sender: FDA-Public Use
  Company Number: 1305-624

PATIENT
  Sex: Male

DRUGS (1)
  1. VEGF TRAP-EYE [Suspect]

REACTIONS (3)
  - Corneal epithelium defect [None]
  - Conjunctival scar [None]
  - Conjunctival hyperaemia [None]
